FAERS Safety Report 8213622-7 (Version None)
Quarter: 2012Q1

REPORT INFORMATION
  Report Type: 
  Country: None (occurrence: None)
  Receive Date: 20120315
  Receipt Date: 20070615
  Transmission Date: 20120608
  Serious: Yes (Hospitalization, Congenital Anomaly)
  Sender: FDA-Public Use
  Company Number: FR-ASTRAZENECA-2007CG00923

PATIENT
  Sex: Female

DRUGS (1)
  1. ATACAND [Suspect]
     Route: 064
     Dates: start: 20060901, end: 20070513

REACTIONS (9)
  - SKULL MALFORMATION [None]
  - OLIGOHYDRAMNIOS [None]
  - PULMONARY ARTERIAL HYPERTENSION [None]
  - HYPOTONIA NEONATAL [None]
  - RENAL FAILURE ACUTE [None]
  - FOETAL DISTRESS SYNDROME [None]
  - MENINGORRHAGIA [None]
  - LIMB DEFORMITY [None]
  - NEONATAL RESPIRATORY DISTRESS SYNDROME [None]
